FAERS Safety Report 14996582 (Version 1)
Quarter: 2018Q2

REPORT INFORMATION
  Report Type: Report from Study
  Country: FR (occurrence: FR)
  Receive Date: 20180611
  Receipt Date: 20180611
  Transmission Date: 20180711
  Serious: Yes (Death, Other)
  Sender: FDA-Public Use
  Company Number: FR-JAZZ-2018-FR-009176

PATIENT

DRUGS (1)
  1. DEFITELIO [Suspect]
     Active Substance: DEFIBROTIDE SODIUM
     Indication: VENOOCCLUSIVE DISEASE
     Dosage: 25 MG/KG, QD
     Dates: start: 20170616, end: 20170717

REACTIONS (4)
  - Graft versus host disease [Fatal]
  - Infection [Fatal]
  - Multiple organ dysfunction syndrome [Unknown]
  - Pulmonary toxicity [Fatal]

NARRATIVE: CASE EVENT DATE: 20171118
